FAERS Safety Report 8921848 (Version 2)
Quarter: 2013Q1

REPORT INFORMATION
  Report Type: Spontaneous
  Country: US (occurrence: US)
  Receive Date: 20121121
  Receipt Date: 20130228
  Transmission Date: 20140127
  Serious: Yes (Other)
  Sender: FDA-Public Use
  Company Number: US-ASTRAZENECA-2012SE86367

PATIENT
  Age: 72 Year
  Sex: Male
  Weight: 83.9 kg

DRUGS (7)
  1. CRESTOR [Suspect]
     Indication: BLOOD CHOLESTEROL ABNORMAL
     Route: 048
     Dates: start: 2002
  2. CRESTOR [Suspect]
     Indication: BLOOD CHOLESTEROL ABNORMAL
     Route: 048
  3. METOPROLOL TARTRATE [Concomitant]
     Route: 048
     Dates: start: 1986
  4. METFORMIN [Concomitant]
     Indication: DIABETES MELLITUS
     Route: 048
     Dates: start: 2005
  5. RANITIDINE [Concomitant]
     Indication: ULCER
     Route: 048
  6. RAMIPRIL [Concomitant]
     Indication: CARDIAC DISORDER
     Route: 048
  7. ALPRAZOLAM [Concomitant]
     Indication: ANXIETY
     Route: 048

REACTIONS (6)
  - Acute myocardial infarction [Unknown]
  - Weight decreased [Unknown]
  - Panic attack [Unknown]
  - Type 2 diabetes mellitus [Unknown]
  - Muscle spasms [Unknown]
  - Arthralgia [Unknown]
